FAERS Safety Report 20738377 (Version 1)
Quarter: 2022Q2

REPORT INFORMATION
  Report Type: Spontaneous
  Country: PL (occurrence: PL)
  Receive Date: 20220422
  Receipt Date: 20220422
  Transmission Date: 20220720
  Serious: Yes (Other)
  Sender: FDA-Public Use
  Company Number: PL-BAXTER-2022BAX008698

PATIENT
  Age: 11 Year
  Sex: Male

DRUGS (4)
  1. DOXORUBICIN HYDROCHLORIDE [Suspect]
     Active Substance: DOXORUBICIN HYDROCHLORIDE
     Indication: B-cell type acute leukaemia
     Route: 065
     Dates: start: 20201105
  2. DEXAMETHASONE [Suspect]
     Active Substance: DEXAMETHASONE
     Indication: B-cell type acute leukaemia
     Route: 065
     Dates: start: 20201105
  3. VINCRISTINE [Suspect]
     Active Substance: VINCRISTINE
     Indication: B-cell type acute leukaemia
     Route: 065
     Dates: start: 20201105
  4. PEG/L-ASPARAGINASE [Suspect]
     Active Substance: PEGASPARGASE
     Indication: B-cell type acute leukaemia
     Route: 065
     Dates: start: 20201105

REACTIONS (2)
  - Cholestasis [Recovering/Resolving]
  - Hepatotoxicity [Recovering/Resolving]
